FAERS Safety Report 5137920-9 (Version None)
Quarter: 2006Q4

REPORT INFORMATION
  Report Type: 
  Country: None (occurrence: None)
  Receive Date: 20061030
  Receipt Date: 20060210
  Transmission Date: 20070319
  Serious: Yes (Hospitalization)
  Sender: FDA-Public Use
  Company Number: US-GLAXOSMITHKLINE-A0593302A

PATIENT
  Age: 82 Year
  Sex: Male

DRUGS (15)
  1. ADVAIR HFA [Suspect]
     Indication: EMPHYSEMA
     Dosage: 1PUFF TWICE PER DAY
     Route: 055
  2. PREDNISONE TAB [Concomitant]
  3. ALBUTEROL [Concomitant]
  4. COZAAR [Concomitant]
  5. GLUCOTROL [Concomitant]
  6. FLONASE [Concomitant]
  7. QUININE SULFATE [Concomitant]
  8. LASIX [Concomitant]
  9. INSULIN [Concomitant]
  10. SPIRIVA [Concomitant]
  11. SINGULAIR [Concomitant]
  12. SIMVASTATIN [Concomitant]
  13. TRAZODONE HCL [Concomitant]
  14. FLOMAX [Concomitant]
  15. OMEPRAZOLE [Concomitant]

REACTIONS (1)
  - DRUG INEFFECTIVE [None]
